FAERS Safety Report 8035472-7 (Version None)
Quarter: 2012Q1

REPORT INFORMATION
  Report Type: 
  Country: None (occurrence: None)
  Receive Date: 20120110
  Receipt Date: 20120110
  Transmission Date: 20120608
  Serious: Yes (Hospitalization)
  Sender: FDA-Public Use
  Company Number: None

PATIENT
  Sex: Male
  Weight: 79.3795 kg

DRUGS (4)
  1. DOXORUBICIN HCL [Suspect]
     Dosage: 63MG IV
     Route: 042
  2. CISPLATIN [Suspect]
     Dosage: C 148 MGIV
     Route: 042
  3. METHOTREXATE [Suspect]
     Dosage: M 63MG IV 3 CYCLES
     Route: 042
     Dates: start: 20111013, end: 20111110
  4. VINBLASTINE SULFATE [Suspect]
     Dosage: V 6 MG IV
     Route: 042

REACTIONS (10)
  - ABDOMINAL PAIN [None]
  - BLADDER OBSTRUCTION [None]
  - NAUSEA [None]
  - LEUKOCYTOSIS [None]
  - HAEMATOMA [None]
  - CONSTIPATION [None]
  - PYREXIA [None]
  - LYMPHOCELE [None]
  - SEROMA [None]
  - POST PROCEDURAL COMPLICATION [None]
